FAERS Safety Report 12872565 (Version 1)
Quarter: 2016Q4

REPORT INFORMATION
  Report Type: Spontaneous
  Country: ES (occurrence: ES)
  Receive Date: 20161021
  Receipt Date: 20161021
  Transmission Date: 20170207
  Serious: Yes (Other)
  Sender: FDA-Public Use
  Company Number: ES-009507513-1610ESP004849

PATIENT
  Age: 56 Year
  Sex: Male

DRUGS (8)
  1. COLISTIN [Suspect]
     Active Substance: COLISTIN
     Indication: PNEUMONIA KLEBSIELLA
  2. FOSFOMYCIN [Suspect]
     Active Substance: FOSFOMYCIN
     Indication: ESCHERICHIA INFECTION
  3. COLISTIN [Suspect]
     Active Substance: COLISTIN
     Indication: ESCHERICHIA INFECTION
  4. TIGECYCLINE. [Suspect]
     Active Substance: TIGECYCLINE
     Indication: PNEUMONIA KLEBSIELLA
  5. FOSFOMYCIN [Suspect]
     Active Substance: FOSFOMYCIN
     Indication: PNEUMONIA KLEBSIELLA
  6. IMIPENEM AND CILASTATIN [Suspect]
     Active Substance: CILASTATIN SODIUM\IMIPENEM
     Indication: PNEUMONIA KLEBSIELLA
  7. TIGECYCLINE. [Suspect]
     Active Substance: TIGECYCLINE
     Indication: ESCHERICHIA INFECTION
  8. IMIPENEM AND CILASTATIN [Suspect]
     Active Substance: CILASTATIN SODIUM\IMIPENEM
     Indication: ESCHERICHIA INFECTION

REACTIONS (1)
  - Pathogen resistance [Recovered/Resolved]
